FAERS Safety Report 12930594 (Version 2)
Quarter: 2016Q4

REPORT INFORMATION
  Report Type: Spontaneous
  Country: CA (occurrence: CA)
  Receive Date: 20161110
  Receipt Date: 20161221
  Transmission Date: 20170207
  Serious: Yes (Other)
  Sender: FDA-Public Use
  Company Number: CA-LPDUSPRD-20160986

PATIENT
  Age: 47 Year
  Sex: Female

DRUGS (1)
  1. VENOFER [Suspect]
     Active Substance: IRON SUCROSE
     Dosage: 300 MG IN 500 ML NSS
     Route: 042
     Dates: start: 20160425, end: 20160425

REACTIONS (6)
  - Joint stiffness [Unknown]
  - Flushing [Unknown]
  - Nervousness [Unknown]
  - Palpitations [Unknown]
  - Blood pressure systolic abnormal [Unknown]
  - Heart rate increased [Unknown]

NARRATIVE: CASE EVENT DATE: 20160425
